FAERS Safety Report 9449787 (Version 1)
Quarter: 2013Q3

REPORT INFORMATION
  Report Type: Spontaneous
  Country: US (occurrence: US)
  Receive Date: 20130809
  Receipt Date: 20130809
  Transmission Date: 20140515
  Serious: No
  Sender: FDA-Public Use
  Company Number: US-JNJFOC-20130709160

PATIENT
  Age: 4 Decade
  Sex: Female

DRUGS (1)
  1. INVEGA [Suspect]
     Indication: PRODUCT USED FOR UNKNOWN INDICATION
     Dosage: STARTED 1-2 WEEKS BEFORE THE EVENT
     Route: 048
     Dates: start: 201307

REACTIONS (1)
  - Galactorrhoea [Not Recovered/Not Resolved]
